FAERS Safety Report 4440401-9 (Version None)
Quarter: 2004Q3

REPORT INFORMATION
  Report Type: 
  Country: None (occurrence: None)
  Receive Date: 20040901
  Receipt Date: 20040901
  Transmission Date: 20050211
  Serious: Yes (Disabling)
  Sender: FDA-Public Use
  Company Number: None

PATIENT
  Age: 44 Year
  Sex: Female

DRUGS (3)
  1. ZOMETA [Suspect]
     Indication: BREAST CANCER METASTATIC
     Dosage: 4 MG MONTHLY IV
     Route: 042
     Dates: start: 20010101, end: 20040515
  2. DOCETAXEL [Concomitant]
  3. DEXAMETHASONE [Concomitant]

REACTIONS (1)
  - ASEPTIC NECROSIS BONE [None]
